FAERS Safety Report 6914091-7 (Version None)
Quarter: 2010Q3

REPORT INFORMATION
  Report Type: 
  Country: None (occurrence: None)
  Receive Date: 20100806
  Receipt Date: 20100806
  Transmission Date: 20110219
  Serious: Yes (Hospitalization)
  Sender: FDA-Public Use
  Company Number: None

PATIENT
  Sex: Male
  Weight: 129.2752 kg

DRUGS (1)
  1. LISINOPRIL AND HYDROCHLOROTHIAZIDE [Suspect]
     Indication: HYPERTENSION
     Dosage: 20/25 ONE Q DAY PO
     Route: 048

REACTIONS (3)
  - BLOOD PRESSURE DECREASED [None]
  - PRODUCT SUBSTITUTION ISSUE [None]
  - SYNCOPE [None]
